FAERS Safety Report 9891681 (Version 1)
Quarter: 2014Q1

REPORT INFORMATION
  Report Type: Spontaneous
  Country: US (occurrence: None)
  Receive Date: 20140210
  Receipt Date: 20140210
  Transmission Date: 20141002
  Serious: Yes (Death)
  Sender: FDA-Public Use
  Company Number: 2014010132

PATIENT
  Age: 34 Year
  Sex: Female

DRUGS (5)
  1. ZOLPIDEM (ZOLPIDEM) [Suspect]
  2. CARISOPRODOL/SALICYLATE [Suspect]
  3. ACETAMINOPHEN/HYDROCODONE [Suspect]
  4. MORPHINE [Suspect]
  5. SERTRALINE (SERTRALINE) [Suspect]

REACTIONS (3)
  - Exposure via ingestion [None]
  - Poisoning [None]
  - Drug abuse [None]
